FAERS Safety Report 7349668-0 (Version None)
Quarter: 2011Q1

REPORT INFORMATION
  Report Type: 
  Country: None (occurrence: None)
  Receive Date: 20110309
  Receipt Date: 20110309
  Transmission Date: 20110831
  Serious: No
  Sender: FDA-Public Use
  Company Number: None

PATIENT
  Age: 54 Year
  Sex: Female
  Weight: 51.7101 kg

DRUGS (1)
  1. BUPROPION XL [Suspect]
     Indication: DEPRESSION
     Dosage: 300 MG DAILY ORAL
     Route: 048
     Dates: start: 20090309

REACTIONS (3)
  - PRODUCT SUBSTITUTION ISSUE [None]
  - NO THERAPEUTIC RESPONSE [None]
  - DRUG INEFFECTIVE [None]
